FAERS Safety Report 19820694 (Version 1)
Quarter: 2021Q3

REPORT INFORMATION
  Report Type: Spontaneous
  Country: US (occurrence: US)
  Receive Date: 20210910
  Receipt Date: 20210910
  Transmission Date: 20211014
  Serious: No
  Sender: FDA-Public Use
  Company Number: None

PATIENT
  Age: 39 Year
  Sex: Male
  Weight: 80 kg

DRUGS (1)
  1. ETOPOSIDE (ETOPOSIDE 20MG/,L INJ, VIL, 50ML) [Suspect]
     Active Substance: ETOPOSIDE
     Indication: SMALL CELL LUNG CANCER
     Route: 042
     Dates: start: 20210901, end: 20210901

REACTIONS (4)
  - Flushing [None]
  - Hyperhidrosis [None]
  - Disorientation [None]
  - Erythema [None]

NARRATIVE: CASE EVENT DATE: 20210901
